FAERS Safety Report 10757716 (Version 2)
Quarter: 2017Q1

REPORT INFORMATION
  Report Type: Spontaneous
  Country: US (occurrence: US)
  Receive Date: 20150203
  Receipt Date: 20170210
  Transmission Date: 20170428
  Serious: Yes (Other)
  Sender: FDA-Public Use
  Company Number: US-SA-2015SA011177

PATIENT
  Age: 82 Year
  Sex: Male

DRUGS (5)
  1. LANTUS SOLOSTAR [Suspect]
     Active Substance: INSULIN GLARGINE
     Indication: TYPE 1 DIABETES MELLITUS
     Dosage: DOSE:40 UNIT(S)
     Route: 065
  2. HUMALOG [Concomitant]
     Active Substance: INSULIN LISPRO
  3. TOUJEO [Concomitant]
     Active Substance: INSULIN GLARGINE
  4. SOLOSTAR [Concomitant]
     Active Substance: DEVICE
  5. SOLOSTAR [Concomitant]
     Active Substance: DEVICE

REACTIONS (2)
  - Hypoacusis [Unknown]
  - Blindness [Unknown]
